FAERS Safety Report 17803097 (Version 6)
Quarter: 2021Q4

REPORT INFORMATION
  Report Type: Spontaneous
  Country: FR (occurrence: FR)
  Receive Date: 20200519
  Receipt Date: 20211112
  Transmission Date: 20220304
  Serious: Yes (Hospitalization, Other)
  Sender: FDA-Public Use
  Company Number: FR-FRESENIUS KABI-FK202004700

PATIENT
  Age: 70 Year
  Sex: Male

DRUGS (4)
  1. SODIUM CHLORIDE [Suspect]
     Active Substance: SODIUM CHLORIDE
     Indication: Product used for unknown indication
     Dosage: UNK
     Route: 065
  2. GEMCITABINE [Suspect]
     Active Substance: GEMCITABINE
     Indication: Product used for unknown indication
     Dosage: 1990 MG DAILY
     Route: 065
     Dates: start: 20200210, end: 20200210
  3. GEMCITABINE [Suspect]
     Active Substance: GEMCITABINE
     Dosage: 1990 MG DAILY
     Route: 065
     Dates: start: 20200217, end: 20200217
  4. CISPLATIN [Suspect]
     Active Substance: CISPLATIN
     Indication: Product used for unknown indication
     Dosage: 140 MG DAILY
     Route: 065
     Dates: start: 20200210, end: 20200210

REACTIONS (2)
  - Cardiac failure [Recovered/Resolved]
  - Hypervolaemia [Unknown]

NARRATIVE: CASE EVENT DATE: 20200306
